FAERS Safety Report 10357421 (Version 1)
Quarter: 2014Q3

REPORT INFORMATION
  Report Type: Spontaneous
  Country: US (occurrence: None)
  Receive Date: 20140730
  Receipt Date: 20140730
  Transmission Date: 20150326
  Serious: Yes (Hospitalization, Other)
  Sender: FDA-Public Use
  Company Number: 001775532A

PATIENT
  Age: 56 Year
  Sex: Female

DRUGS (3)
  1. PLEXXUS [Concomitant]
  2. MEANINGFUL BEAUTY CINDY CRAWFORD ANTIOXIDANT SPF 20 UVA/UVB [Suspect]
     Active Substance: AVOBENZONE\OCTINOXATE\OCTISALATE\OXYBENZONE
     Dosage: DERMAL
     Dates: start: 20140423, end: 20140428
  3. MEANINGFUL BEAUTY CINDY CRAWFORD SKIN BRIGHTENING DECOLLETE AND NECK TREATMENT SPF 15 [Suspect]
     Active Substance: AVOBENZONE\OCTINOXATE\OCTISALATE\OXYBENZONE
     Dosage: DERMAL
     Dates: start: 20140423, end: 20140428

REACTIONS (4)
  - Local swelling [None]
  - Swelling face [None]
  - Dyspnoea [None]
  - Pharyngeal oedema [None]

NARRATIVE: CASE EVENT DATE: 20140426
